FAERS Safety Report 5708481-8 (Version None)
Quarter: 2008Q2

REPORT INFORMATION
  Report Type: 
  Country: None (occurrence: None)
  Receive Date: 20080417
  Receipt Date: 20080416
  Transmission Date: 20081010
  Serious: Yes (Other)
  Sender: FDA-Public Use
  Company Number: FR-BRISTOL-MYERS SQUIBB COMPANY-14145312

PATIENT
  Sex: Female

DRUGS (1)
  1. LYSODREN [Suspect]
     Indication: ADRENOCORTICAL CARCINOMA

REACTIONS (2)
  - AMENORRHOEA [None]
  - OVARIAN CYST [None]
